FAERS Safety Report 11320659 (Version 1)
Quarter: 2015Q3

REPORT INFORMATION
  Report Type: Spontaneous
  Country: US (occurrence: US)
  Receive Date: 20150729
  Receipt Date: 20150729
  Transmission Date: 20151125
  Serious: Yes (Hospitalization)
  Sender: FDA-Public Use
  Company Number: US-ELI_LILLY_AND_COMPANY-US201507009181

PATIENT
  Sex: Female

DRUGS (1)
  1. HUMALOG [Suspect]
     Active Substance: INSULIN LISPRO
     Indication: TYPE 2 DIABETES MELLITUS
     Dosage: UNK
     Route: 065
     Dates: start: 2013

REACTIONS (7)
  - Hypersensitivity [Unknown]
  - Dyspnoea [Unknown]
  - Abdominal pain [Unknown]
  - Dyspnoea [Unknown]
  - Pruritus [Unknown]
  - Angina pectoris [Unknown]
  - Urticaria [Unknown]

NARRATIVE: CASE EVENT DATE: 201506
